FAERS Safety Report 13053566 (Version 3)
Quarter: 2017Q1

REPORT INFORMATION
  Report Type: Report from Study
  Country: US (occurrence: US)
  Receive Date: 20161222
  Receipt Date: 20170131
  Transmission Date: 20170428
  Serious: No
  Sender: FDA-Public Use
  Company Number: US-AMGEN-USASL2016179973

PATIENT
  Age: 65 Year
  Sex: Female

DRUGS (2)
  1. ASPARTAME [Suspect]
     Active Substance: ASPARTAME
     Indication: PRODUCT USED FOR UNKNOWN INDICATION
     Dosage: UNK
     Route: 065
  2. ENBREL [Suspect]
     Active Substance: ETANERCEPT
     Indication: RHEUMATOID ARTHRITIS
     Dosage: 50 MG, QWK
     Route: 058
     Dates: start: 20161110

REACTIONS (24)
  - Epistaxis [Unknown]
  - Chills [Unknown]
  - Back pain [Unknown]
  - Chondropathy [Unknown]
  - Mobility decreased [Unknown]
  - Bowel movement irregularity [Unknown]
  - Dizziness [Recovering/Resolving]
  - Tremor [Unknown]
  - Skin discolouration [Unknown]
  - Therapeutic response decreased [Unknown]
  - Musculoskeletal stiffness [Unknown]
  - Pruritus [Unknown]
  - Paraesthesia [Unknown]
  - Musculoskeletal pain [Recovered/Resolved]
  - Fatigue [Unknown]
  - Hot flush [Unknown]
  - Peripheral coldness [Unknown]
  - Headache [Unknown]
  - Limb discomfort [Unknown]
  - Sensation of foreign body [Unknown]
  - Chest pain [Unknown]
  - Pain [Unknown]
  - Arthralgia [Not Recovered/Not Resolved]
  - Tachycardia [Unknown]

NARRATIVE: CASE EVENT DATE: 2016
